FAERS Safety Report 21560192 (Version 3)
Quarter: 2023Q1

REPORT INFORMATION
  Report Type: Report from Study
  Country: US (occurrence: US)
  Receive Date: 20221107
  Receipt Date: 20230210
  Transmission Date: 20230418
  Serious: Yes (Hospitalization)
  Sender: FDA-Public Use
  Company Number: US-JAZZ-2022-US-034348

PATIENT
  Sex: Female

DRUGS (14)
  1. XYWAV [Suspect]
     Active Substance: CALCIUM OXYBATE\MAGNESIUM OXYBATE\POTASSIUM OXYBATE\SODIUM OXYBATE
     Indication: Hypersomnia
     Dosage: 3 GRAM, BID
  2. XYREM [Suspect]
     Active Substance: SODIUM OXYBATE
     Indication: Hypersomnia
  3. IBUPROFEN [Concomitant]
     Active Substance: IBUPROFEN
     Indication: Product used for unknown indication
     Dosage: CAPLET
     Dates: start: 20180906
  4. SINGULAIR [Concomitant]
     Active Substance: MONTELUKAST SODIUM
     Indication: Product used for unknown indication
     Dosage: UNK UNK, QD
     Dates: start: 20181024
  5. METOPROLOL SUCCINATE [Concomitant]
     Active Substance: METOPROLOL SUCCINATE
     Indication: Product used for unknown indication
     Dosage: UNK
     Dates: start: 20220807
  6. SUNOSI [Concomitant]
     Active Substance: SOLRIAMFETOL
     Indication: Product used for unknown indication
     Dosage: TAKE 1 TABLET BY MOUTH DAILY
  7. CELECOXIB [Concomitant]
     Active Substance: CELECOXIB
     Indication: Product used for unknown indication
     Dosage: TAKE 1 TABLET BY MOUTH EVERY DAY
     Dates: start: 20220225
  8. LAMICTAL [Concomitant]
     Active Substance: LAMOTRIGINE
     Indication: Product used for unknown indication
     Dosage: TAKE 1 TABLET BY MOUTH NIGHTLY
     Dates: start: 20210513
  9. LEVONORGESTREL [Concomitant]
     Active Substance: LEVONORGESTREL
     Indication: Product used for unknown indication
     Dosage: TAKE 1 TABLET BY MOUTH NIGHTLY
     Dates: start: 20210908
  10. TOPROL XL [Concomitant]
     Active Substance: METOPROLOL SUCCINATE
     Indication: Product used for unknown indication
     Dosage: AT BEDTIME
     Dates: start: 20220128
  11. PAMELOR [Concomitant]
     Active Substance: NORTRIPTYLINE HYDROCHLORIDE
     Indication: Product used for unknown indication
     Dosage: TAKE 10 MG BY MOUTH NIGHTLY
     Dates: start: 20220202
  12. MORNIFLUMATE [Concomitant]
     Active Substance: MORNIFLUMATE
     Indication: Product used for unknown indication
     Dosage: TAKE 1 CAPSULE BY MOUTH DAILY
     Dates: start: 20220426
  13. SENOKOT-S [Concomitant]
     Active Substance: DOCUSATE SODIUM\SENNOSIDES
     Indication: Product used for unknown indication
     Dosage: TAKE 1 TABLET BY MOUTH DAILY
     Dates: start: 20220426
  14. PYRIDIUM [Concomitant]
     Active Substance: PHENAZOPYRIDINE
     Indication: Product used for unknown indication
     Dosage: TAKE 1 TABLET BY MOUTH THREE TIMES DAILY
     Dates: start: 20220426

REACTIONS (2)
  - Hospitalisation [Unknown]
  - Off label use [Unknown]
